FAERS Safety Report 17402675 (Version 1)
Quarter: 2020Q1

REPORT INFORMATION
  Report Type: Spontaneous
  Country: US (occurrence: US)
  Receive Date: 20200210
  Receipt Date: 20200210
  Transmission Date: 20200409
  Serious: Yes (Disabling, Other)
  Sender: FDA-Public Use
  Company Number: None

PATIENT
  Age: 61 Year
  Sex: Female

DRUGS (2)
  1. ACETAMINOPHEN AND CODEINE P HOSPHATE 300MG/60MG [Suspect]
     Active Substance: ACETAMINOPHEN\CODEINE PHOSPHATE
     Indication: BACK PAIN
     Dosage: ?          QUANTITY:3 TABLET(S);?
     Route: 048
     Dates: start: 20200116, end: 20200210
  2. TRAMADOL. [Suspect]
     Active Substance: TRAMADOL

REACTIONS (2)
  - Pruritus [None]
  - Manufacturing materials issue [None]

NARRATIVE: CASE EVENT DATE: 20200120
